FAERS Safety Report 11159314 (Version 7)
Quarter: 2016Q2

REPORT INFORMATION
  Report Type: Spontaneous
  Country: US (occurrence: US)
  Receive Date: 20150603
  Receipt Date: 20160624
  Transmission Date: 20160815
  Serious: Yes (Hospitalization, Disabling, Other)
  Sender: FDA-Public Use
  Company Number: US-MERCK-1506USA002055

PATIENT
  Sex: Female
  Weight: 72.11 kg

DRUGS (13)
  1. BONIVA [Suspect]
     Active Substance: IBANDRONATE SODIUM
     Indication: OSTEOPOROSIS
     Dosage: 150 MG, QM
     Route: 048
     Dates: start: 200609, end: 201202
  2. FOSAMAX [Suspect]
     Active Substance: ALENDRONATE SODIUM
     Indication: OSTEOPOROSIS
     Dosage: 5 MG, QD
     Route: 048
     Dates: start: 200103, end: 200609
  3. FOSAMAX [Suspect]
     Active Substance: ALENDRONATE SODIUM
     Dosage: 70 MG, QW
     Route: 048
     Dates: start: 200103, end: 200609
  4. ALENDRONATE SODIUM. [Suspect]
     Active Substance: ALENDRONATE SODIUM
     Indication: OSTEOPOROSIS
     Dosage: 5 MG, QD
     Route: 048
     Dates: start: 201203, end: 201304
  5. IBANDRONATE SODIUM. [Suspect]
     Active Substance: IBANDRONATE SODIUM
     Indication: OSTEOPOROSIS
     Dosage: 150 MG, QM
     Route: 048
     Dates: start: 201304, end: 201401
  6. ALENDRONATE SODIUM. [Suspect]
     Active Substance: ALENDRONATE SODIUM
     Indication: OSTEOPOROSIS
     Dosage: 70 MG, UNK
     Route: 048
     Dates: start: 20120308, end: 201302
  7. PANTOPRAZOLE [Concomitant]
     Active Substance: PANTOPRAZOLE SODIUM
     Indication: PRODUCT USED FOR UNKNOWN INDICATION
     Dosage: UNK
     Route: 065
     Dates: start: 1990
  8. VITAMINS (UNSPECIFIED) [Concomitant]
     Active Substance: VITAMINS
     Indication: PRODUCT USED FOR UNKNOWN INDICATION
     Dosage: UNK
     Route: 065
     Dates: start: 2001, end: 2015
  9. CALCIUM (UNSPECIFIED) [Concomitant]
     Active Substance: CALCIUM
     Indication: PRODUCT USED FOR UNKNOWN INDICATION
     Dosage: UNK
     Route: 065
     Dates: start: 2001, end: 2015
  10. VITAMIN D [Concomitant]
     Active Substance: CHOLECALCIFEROL
     Indication: PRODUCT USED FOR UNKNOWN INDICATION
     Dosage: UNK
     Route: 065
     Dates: start: 2001, end: 2015
  11. ALENDRONATE SODIUM. [Suspect]
     Active Substance: ALENDRONATE SODIUM
     Dosage: 70 MG, QW
     Route: 048
     Dates: start: 201203, end: 201304
  12. NEXIUM [Concomitant]
     Active Substance: ESOMEPRAZOLE MAGNESIUM
     Indication: PRODUCT USED FOR UNKNOWN INDICATION
     Dosage: 40 MG, QD
     Route: 065
     Dates: start: 1990
  13. PRILOSEC [Concomitant]
     Active Substance: OMEPRAZOLE MAGNESIUM
     Indication: PRODUCT USED FOR UNKNOWN INDICATION
     Dosage: UNK
     Route: 048
     Dates: start: 2006

REACTIONS (38)
  - Femur fracture [Recovering/Resolving]
  - Hyperlipidaemia [Unknown]
  - Sleep apnoea syndrome [Unknown]
  - Anxiety [Unknown]
  - Ovarian cystectomy [Unknown]
  - Hysteropexy [Unknown]
  - Urinary tract infection [Unknown]
  - Arthralgia [Unknown]
  - Anaemia postoperative [Unknown]
  - Calcium deficiency [Unknown]
  - Adverse event [Unknown]
  - Diverticulum [Unknown]
  - Alopecia [Unknown]
  - Pain in extremity [Unknown]
  - Leukocytosis [Unknown]
  - Appendicectomy [Unknown]
  - Emphysema [Unknown]
  - Low turnover osteopathy [Not Recovered/Not Resolved]
  - Vitamin D deficiency [Unknown]
  - Face injury [Unknown]
  - Pneumonia [Unknown]
  - Oophorectomy [Unknown]
  - Femur fracture [Not Recovered/Not Resolved]
  - Osteoarthritis [Unknown]
  - Mitral valve prolapse [Unknown]
  - Large intestine polyp [Unknown]
  - Asthma [Unknown]
  - Depression [Unknown]
  - Clostridium difficile infection [Unknown]
  - Benign gastric neoplasm [Unknown]
  - Fracture nonunion [Unknown]
  - Cholecystectomy [Unknown]
  - Urinary tract infection [Unknown]
  - Hypertension [Unknown]
  - Hypotension [Unknown]
  - Hypokalaemia [Unknown]
  - Dyspepsia [Unknown]
  - Laceration [Unknown]

NARRATIVE: CASE EVENT DATE: 200506
